FAERS Safety Report 6487982-1 (Version None)
Quarter: 2009Q4

REPORT INFORMATION
  Report Type: 
  Country: None (occurrence: None)
  Receive Date: 20091210
  Receipt Date: 20091130
  Transmission Date: 20100525
  Serious: Yes (Other)
  Sender: FDA-Public Use
  Company Number: PHHY2009JP50844

PATIENT
  Age: 59 Year
  Sex: Male

DRUGS (4)
  1. CYCLOSPORINE [Suspect]
     Indication: DERMATOMYOSITIS
  2. CYCLOSPORINE [Suspect]
     Indication: INTERSTITIAL LUNG DISEASE
  3. STEROIDS NOS [Concomitant]
     Indication: DERMATOMYOSITIS
  4. STEROIDS NOS [Concomitant]
     Indication: INTERSTITIAL LUNG DISEASE

REACTIONS (3)
  - BRAIN NATRIURETIC PEPTIDE INCREASED [None]
  - CARDIOMYOPATHY [None]
  - ELECTROCARDIOGRAM CHANGE [None]
